FAERS Safety Report 19471886 (Version 1)
Quarter: 2021Q2

REPORT INFORMATION
  Report Type: Spontaneous
  Country: US (occurrence: US)
  Receive Date: 20210629
  Receipt Date: 20210629
  Transmission Date: 20210717
  Serious: Yes (Death)
  Sender: FDA-Public Use
  Company Number: None

PATIENT
  Age: 48 Year
  Sex: Male
  Weight: 76.5 kg

DRUGS (1)
  1. KETOROLAC TROMETHAMINE PHYSICIAN PARTNER [Suspect]
     Active Substance: KETOROLAC TROMETHAMINE
     Indication: BACK PAIN
     Route: 030
     Dates: start: 20210323, end: 20210323

REACTIONS (2)
  - Thrombosis [None]
  - Death [None]

NARRATIVE: CASE EVENT DATE: 20210510
